FAERS Safety Report 5996425-3 (Version None)
Quarter: 2008Q4

REPORT INFORMATION
  Report Type: 
  Country: None (occurrence: None)
  Receive Date: 20081212
  Receipt Date: 20081017
  Transmission Date: 20090506
  Serious: No
  Sender: FDA-Public Use
  Company Number: US-ABBOTT-08P-163-0482429-00

PATIENT
  Sex: Male

DRUGS (5)
  1. HUMIRA [Suspect]
     Indication: PSORIASIS
     Route: 058
     Dates: start: 20070101, end: 20081001
  2. HUMIRA [Suspect]
     Route: 058
     Dates: start: 20081001
  3. AMIKACIN SULFATE [Concomitant]
     Indication: HYPERTENSION
     Route: 048
  4. SERTRALINE [Concomitant]
     Indication: STRESS
     Route: 048
  5. ACETYLSALICYLIC ACID SRT [Concomitant]
     Indication: PAIN
     Route: 048

REACTIONS (2)
  - NASOPHARYNGITIS [None]
  - PSORIASIS [None]
